FAERS Safety Report 7360752-8 (Version None)
Quarter: 2011Q1

REPORT INFORMATION
  Report Type: 
  Country: None (occurrence: None)
  Receive Date: 20110318
  Receipt Date: 20081017
  Transmission Date: 20110831
  Serious: Yes (Death, Other)
  Sender: FDA-Public Use
  Company Number: US-BAYER-200836270NA

PATIENT
  Sex: Female
  Weight: 79.365 kg

DRUGS (28)
  1. TRASYLOL [Suspect]
     Indication: TRICUSPID VALVE REPAIR
  2. PLATELETS [Concomitant]
     Dosage: 1 U, UNK
     Dates: start: 20050928
  3. NITROGLYCERIN [Concomitant]
     Dosage: UNK
     Route: 042
     Dates: start: 20050926
  4. LASIX [Concomitant]
     Dosage: UNK
     Route: 041
     Dates: start: 20050927
  5. ASPIRIN [Concomitant]
     Dosage: 81 MG, QD
     Route: 048
  6. TAMOXIFEN CITRATE [Concomitant]
     Indication: METASTASES TO BONE
     Dosage: 10 MG, UNK
     Route: 048
  7. FRESH FROZEN PLASMA [Concomitant]
     Dosage: 4 U, UNK
     Dates: start: 20050926
  8. PROPOFOL [Concomitant]
     Indication: SEDATION
     Dosage: UNK
     Route: 041
     Dates: start: 20050926
  9. RED BLOOD CELLS [Concomitant]
     Dosage: 3 U, UNK
     Dates: start: 20050929
  10. TOPROL-XL [Concomitant]
     Dosage: 100 MG, QD
     Route: 048
  11. INSULIN [Concomitant]
     Dosage: UNK
     Route: 042
     Dates: start: 20050926
  12. PLATELETS [Concomitant]
     Dosage: 1 U, UNK
     Dates: start: 20050929
  13. PHENYLEPHRINE [Concomitant]
     Dosage: UNK
     Route: 042
     Dates: start: 20050926
  14. VASOPRESSIN [Concomitant]
     Dosage: UNK
     Dates: start: 20050927
  15. LASIX [Concomitant]
     Dosage: 40 MG, QD
     Route: 048
  16. LASIX [Concomitant]
     Dosage: UNK
     Route: 042
     Dates: start: 20050926
  17. HYZAAR [Concomitant]
     Dosage: 100/25 MG, QD
     Route: 048
  18. POTASSIUM [Concomitant]
     Dosage: 20 MEQ/24HR, UNK
     Route: 048
  19. TRASYLOL [Suspect]
     Indication: MITRAL VALVE REPLACEMENT
     Dosage: 600 ML, THEN 50 ML/HR
     Route: 042
     Dates: start: 20050926, end: 20050926
  20. PROPOFOL [Concomitant]
     Dosage: 16 MCG/KG/MINUTE
     Dates: start: 20050927
  21. NORVASC [Concomitant]
     Dosage: 5 MG, QD
     Route: 048
  22. PROTAMINE SULFATE [Concomitant]
     Dosage: 300 MG, UNK
     Route: 042
     Dates: start: 20050926, end: 20050926
  23. PROPOFOL [Concomitant]
     Dosage: UNK
     Dates: start: 20050928
  24. PLATELETS [Concomitant]
     Dosage: 1 U, UNK
     Dates: start: 20050927
  25. HEPARIN SODIUM [Concomitant]
     Dosage: UNK
     Route: 042
     Dates: start: 20050926
  26. UNCODEABLE ^UNCLASSIFIABLE^ [Concomitant]
     Dosage: 1393 ML, UNK
     Dates: start: 20050926
  27. EPINEPHRINE [Concomitant]
     Dosage: UNK
     Dates: start: 20050927
  28. NITROGLYCERIN [Concomitant]
     Dosage: UNK
     Dates: start: 20050927

REACTIONS (13)
  - RENAL FAILURE [None]
  - EMOTIONAL DISTRESS [None]
  - MULTI-ORGAN FAILURE [None]
  - STRESS [None]
  - ANXIETY [None]
  - FEAR [None]
  - ANHEDONIA [None]
  - RENAL IMPAIRMENT [None]
  - DEATH [None]
  - RENAL INJURY [None]
  - UNEVALUABLE EVENT [None]
  - INJURY [None]
  - PAIN [None]
